FAERS Safety Report 5784247-8 (Version None)
Quarter: 2008Q2

REPORT INFORMATION
  Report Type: 
  Country: None (occurrence: None)
  Receive Date: 20080619
  Receipt Date: 20080619
  Transmission Date: 20081010
  Serious: Yes (Life-Threatening, Hospitalization)
  Sender: FDA-Public Use
  Company Number: None

PATIENT
  Sex: Male
  Weight: 18.5 kg

DRUGS (3)
  1. MOTRIN [Suspect]
     Indication: PAIN
     Dosage: DOSE RECOMMENDED ON LABEL PO
     Route: 048
     Dates: start: 20030703, end: 20030707
  2. MOTRIN [Suspect]
     Indication: PHARYNGOLARYNGEAL PAIN
     Dosage: DOSE RECOMMENDED ON LABEL PO
     Route: 048
     Dates: start: 20030703, end: 20030707
  3. MOTRIN [Suspect]
     Indication: PYREXIA
     Dosage: DOSE RECOMMENDED ON LABEL PO
     Route: 048
     Dates: start: 20030703, end: 20030707

REACTIONS (8)
  - BLINDNESS [None]
  - CARDIOMYOPATHY [None]
  - EYE PAIN [None]
  - GENERAL PHYSICAL HEALTH DETERIORATION [None]
  - LUNG DISORDER [None]
  - PHOTOPHOBIA [None]
  - STEVENS-JOHNSON SYNDROME [None]
  - TOXIC EPIDERMAL NECROLYSIS [None]
